FAERS Safety Report 20950875 (Version 2)
Quarter: 2022Q2

REPORT INFORMATION
  Report Type: Report from Study
  Country: FR (occurrence: None)
  Receive Date: 20220613
  Receipt Date: 20220617
  Transmission Date: 20220721
  Serious: Yes (Death)
  Sender: FDA-Public Use
  Company Number: 2022A209637

PATIENT
  Age: 85 Year
  Sex: Male
  Weight: 85 kg

DRUGS (4)
  1. EVUSHELD [Suspect]
     Active Substance: CILGAVIMAB\TIXAGEVIMAB
     Indication: COVID-19 prophylaxis
     Route: 030
     Dates: start: 20220126, end: 20220126
  2. ATOVAQUONE [Concomitant]
     Active Substance: ATOVAQUONE
     Indication: Prophylaxis
  3. VALACYCLOVIR HYDROCHLORIDE [Concomitant]
     Active Substance: VALACYCLOVIR HYDROCHLORIDE
     Indication: Prophylaxis
  4. SMECTA [Concomitant]
     Active Substance: MONTMORILLONITE
     Indication: Diarrhoea

REACTIONS (2)
  - COVID-19 [Fatal]
  - Product use issue [Unknown]

NARRATIVE: CASE EVENT DATE: 20220126
